FAERS Safety Report 17760105 (Version 1)
Quarter: 2020Q2

REPORT INFORMATION
  Report Type: Spontaneous
  Country: GB (occurrence: GB)
  Receive Date: 20200508
  Receipt Date: 20200508
  Transmission Date: 20200714
  Serious: Yes (Other)
  Sender: FDA-Public Use
  Company Number: GB-BRISTOL-MYERS SQUIBB COMPANY-BMS-2020-032592

PATIENT
  Age: 82 Year
  Sex: Male

DRUGS (3)
  1. OMEPRAZOLE. [Concomitant]
     Active Substance: OMEPRAZOLE
     Indication: PRODUCT USED FOR UNKNOWN INDICATION
     Route: 065
  2. SERTALIN [Concomitant]
     Indication: DEPRESSION
     Route: 065
  3. ELIQUIS [Suspect]
     Active Substance: APIXABAN
     Indication: PRODUCT USED FOR UNKNOWN INDICATION
     Dosage: 2.5MG, 1 ON A MORNING, 1 IN THE NIGHT
     Route: 065
     Dates: start: 2020

REACTIONS (2)
  - Feeling abnormal [Unknown]
  - Hallucination [Unknown]

NARRATIVE: CASE EVENT DATE: 2020
